FAERS Safety Report 7978691-8 (Version None)
Quarter: 2011Q4

REPORT INFORMATION
  Report Type: 
  Country: None (occurrence: None)
  Receive Date: 20111129
  Receipt Date: 20110818
  Transmission Date: 20120403
  Serious: No
  Sender: FDA-Public Use
  Company Number: PHEH2011US02512

PATIENT
  Age: 13 Year
  Sex: Male

DRUGS (2)
  1. AFINITOR [Suspect]
     Indication: TUBEROUS SCLEROSIS
     Dosage: 2.5 MG, DAILY, ORAL
     Route: 048
     Dates: start: 20110718
  2. PHENOBARBITAL TAB [Concomitant]

REACTIONS (2)
  - NASOPHARYNGITIS [None]
  - DRUG LEVEL BELOW THERAPEUTIC [None]
